FAERS Safety Report 11977048 (Version 1)
Quarter: 2016Q1

REPORT INFORMATION
  Report Type: Spontaneous
  Country: US (occurrence: US)
  Receive Date: 20160129
  Receipt Date: 20160129
  Transmission Date: 20160526
  Serious: No
  Sender: FDA-Public Use
  Company Number: US-PERRIGO-15US009715

PATIENT
  Sex: Female

DRUGS (2)
  1. IBUPROFEN 200MG-DIPHENHYDRAMINE CITRATE 38 MG 8K7 [Suspect]
     Active Substance: DIPHENHYDRAMINE HYDROCHLORIDE\IBUPROFEN
     Indication: DYSMENORRHOEA
     Dosage: 2 TABLETS, SINGLE AT 2200
     Route: 048
     Dates: start: 20150907, end: 20150907
  2. IBUPROFEN 200MG-DIPHENHYDRAMINE CITRATE 38 MG 8K7 [Suspect]
     Active Substance: DIPHENHYDRAMINE HYDROCHLORIDE\IBUPROFEN
     Dosage: 2 TABLETS, ONCE AT 1000 AND ONCE IN THE AFTERNOON
     Route: 048
     Dates: start: 20150908, end: 20150908

REACTIONS (3)
  - Overdose [Recovered/Resolved]
  - Fatigue [Unknown]
  - Inappropriate schedule of drug administration [Recovered/Resolved]

NARRATIVE: CASE EVENT DATE: 20150907
